FAERS Safety Report 24809026 (Version 1)
Quarter: 2025Q1

REPORT INFORMATION
  Report Type: Spontaneous
  Country: JP (occurrence: JP)
  Receive Date: 20250106
  Receipt Date: 20250106
  Transmission Date: 20250408
  Serious: Yes (Death, Other)
  Sender: BRISTOL-MYERS SQUIBB COMPANY
  Company Number: JP-BRISTOL-MYERS SQUIBB COMPANY-2024-105138

PATIENT
  Age: 84 Year
  Sex: Male

DRUGS (3)
  1. REBLOZYL [Suspect]
     Active Substance: LUSPATERCEPT-AAMT
     Indication: Myelodysplastic syndrome
     Dosage: DOSE : 1 MG/KG;     FREQ : ONCE EVERY 3 WEEKS
     Route: 058
     Dates: start: 202405
  2. REBLOZYL [Suspect]
     Active Substance: LUSPATERCEPT-AAMT
     Route: 058
     Dates: start: 202406
  3. DARBEPOETIN ALFA [Concomitant]
     Active Substance: DARBEPOETIN ALFA
     Indication: Myelodysplastic syndrome
     Route: 058
     Dates: start: 202406

REACTIONS (2)
  - Red blood cell count decreased [Recovering/Resolving]
  - Pericardial effusion [Fatal]

NARRATIVE: CASE EVENT DATE: 20240101
